FAERS Safety Report 12597899 (Version 1)
Quarter: 2016Q3

REPORT INFORMATION
  Report Type: Spontaneous
  Country: US (occurrence: US)
  Receive Date: 20160727
  Receipt Date: 20160727
  Transmission Date: 20161109
  Serious: No
  Sender: FDA-Public Use
  Company Number: US-PFIZER INC-2016361114

PATIENT
  Age: 69 Year
  Sex: Male
  Weight: 77.11 kg

DRUGS (3)
  1. LYRICA [Suspect]
     Active Substance: PREGABALIN
     Indication: SPINAL CORD INJURY
     Dosage: 50 MG, 1X/DAY
     Route: 048
     Dates: start: 20160720
  2. LISINOPRIL. [Concomitant]
     Active Substance: LISINOPRIL
     Indication: HYPERTENSION
     Dosage: 20 MG, 1X/DAY
  3. HYDROCODONE [Concomitant]
     Active Substance: HYDROCODONE
     Indication: PAIN
     Dosage: 5 MG, 4X/DAY

REACTIONS (1)
  - Feeling drunk [Recovered/Resolved]

NARRATIVE: CASE EVENT DATE: 201607
